FAERS Safety Report 6336568-8 (Version None)
Quarter: 2009Q3

REPORT INFORMATION
  Report Type: 
  Country: None (occurrence: None)
  Receive Date: 20090901
  Receipt Date: 20090828
  Transmission Date: 20100115
  Serious: Yes (Life-Threatening)
  Sender: FDA-Public Use
  Company Number: DK-WYE-G04299109

PATIENT
  Sex: Female

DRUGS (19)
  1. GEMTUZUMAB OZOGAMICIN [Suspect]
     Dosage: UNKNOWN
     Dates: start: 20090715
  2. CYTOSINE ARABINOSIDE [Suspect]
  3. PIPERACILLIN [Concomitant]
     Dates: start: 20090809, end: 20090812
  4. MEROPENEM [Concomitant]
     Dates: start: 20090812, end: 20090814
  5. KLACID [Concomitant]
     Dates: start: 20090813, end: 20090814
  6. CENTYL [Concomitant]
     Route: 048
     Dates: start: 20090715, end: 20090811
  7. GLIMEPIRIDE [Concomitant]
     Dates: start: 20090716, end: 20090812
  8. FLUCONAZOLE [Concomitant]
     Dosage: 400 MG EVERY
     Dates: start: 20090620, end: 20090813
  9. LISINOPRIL [Concomitant]
     Dates: start: 20090720, end: 20090814
  10. CENIN [Concomitant]
     Dates: start: 20090729, end: 20090809
  11. CENIN [Concomitant]
     Dates: start: 20090812, end: 20090814
  12. METFORMIN HCL [Concomitant]
     Dates: start: 20090807, end: 20090812
  13. CYKLOKAPRON [Concomitant]
     Dates: start: 20090807, end: 20090815
  14. KALEORID [Concomitant]
     Dates: start: 20090810, end: 20090812
  15. MAGNESIUM [Concomitant]
     Dates: start: 20090811, end: 20090816
  16. SALURES-K [Concomitant]
     Dates: start: 20090811, end: 20090814
  17. AMLODIPINE [Concomitant]
     Dates: start: 20090813, end: 20090814
  18. VFEND [Concomitant]
     Dates: start: 20090813, end: 20090814
  19. DAUNORUBICIN HCL [Suspect]

REACTIONS (3)
  - LACTIC ACIDOSIS [None]
  - MULTI-ORGAN FAILURE [None]
  - SHOCK [None]
